FAERS Safety Report 10079231 (Version 1)
Quarter: 2014Q2

REPORT INFORMATION
  Report Type: Report from Study
  Country: US (occurrence: US)
  Receive Date: 20140415
  Receipt Date: 20140415
  Transmission Date: 20141212
  Serious: Yes (Other)
  Sender: FDA-Public Use
  Company Number: US-BAYER-2014-052648

PATIENT
  Age: 45 Year
  Sex: Female

DRUGS (2)
  1. BETASERON [Suspect]
     Indication: MULTIPLE SCLEROSIS
     Dosage: UNK
     Dates: start: 20131216, end: 20140307
  2. TYSABRI [Suspect]
     Dosage: UNK
     Dates: start: 20140404

REACTIONS (2)
  - Limb discomfort [Recovered/Resolved]
  - Euphoric mood [Recovered/Resolved]
